FAERS Safety Report 8080687-5 (Version None)
Quarter: 2012Q1

REPORT INFORMATION
  Report Type: 
  Country: None (occurrence: None)
  Receive Date: 20120130
  Receipt Date: 20120123
  Transmission Date: 20120608
  Serious: Yes (Other)
  Sender: FDA-Public Use
  Company Number: PHHY2012AR006235

PATIENT
  Sex: Male

DRUGS (1)
  1. EXFORGE [Suspect]
     Indication: HYPERTENSION
     Dosage: 160/? MG, DAILY
     Route: 065
     Dates: start: 20110701, end: 20110901

REACTIONS (2)
  - CONVULSION [None]
  - DIZZINESS [None]
